FAERS Safety Report 23049868 (Version 1)
Quarter: 2023Q4

REPORT INFORMATION
  Report Type: Spontaneous
  Country: US (occurrence: None)
  Receive Date: 20231009
  Receipt Date: 20231009
  Transmission Date: 20240110
  Serious: Yes (Other)
  Sender: FDA-Public Use
  Company Number: None

PATIENT
  Age: 80 Year
  Sex: Male

DRUGS (2)
  1. CAPECITABINE [Suspect]
     Active Substance: CAPECITABINE
     Dosage: FREQUENCY : TWICE A DAY;?
  2. GEMCITABINE [Suspect]
     Active Substance: GEMCITABINE

REACTIONS (11)
  - Hepatic neoplasm [None]
  - Neoplasm progression [None]
  - COVID-19 [None]
  - Asthenia [None]
  - Taste disorder [None]
  - Therapy cessation [None]
  - Fall [None]
  - Diplopia [None]
  - Loss of consciousness [None]
  - Head injury [None]
  - Concussion [None]
